FAERS Safety Report 25716598 (Version 3)
Quarter: 2025Q3

REPORT INFORMATION
  Report Type: Report from Study
  Country: EU (occurrence: EU)
  Receive Date: 20250822
  Receipt Date: 20250901
  Transmission Date: 20251021
  Serious: Yes (Hospitalization, Other)
  Sender: EXELIXIS
  Company Number: EU-IPSEN Group, Research and Development-2025-06298

PATIENT

DRUGS (10)
  1. CABOZANTINIB [Suspect]
     Active Substance: CABOZANTINIB
     Indication: Renal cell carcinoma
     Dosage: 40 MG, QD MORNING
     Dates: start: 20250211
  2. NIVOLUMAB [Suspect]
     Active Substance: NIVOLUMAB
     Indication: Renal cell carcinoma
     Dates: start: 20250114
  3. NIVOLUMAB [Suspect]
     Active Substance: NIVOLUMAB
     Dates: start: 20250128
  4. NIVOLUMAB [Suspect]
     Active Substance: NIVOLUMAB
     Dates: start: 20250211
  5. NIVOLUMAB [Suspect]
     Active Substance: NIVOLUMAB
     Dates: start: 20250225
  6. NIVOLUMAB [Suspect]
     Active Substance: NIVOLUMAB
     Dates: start: 20250311
  7. BISOPROLOL [Concomitant]
     Active Substance: BISOPROLOL
     Indication: Hypertension
     Dosage: 2 MG, QD
     Dates: start: 20241203
  8. METFORMIN [Concomitant]
     Active Substance: METFORMIN HYDROCHLORIDE
     Indication: Type 2 diabetes mellitus
     Dosage: 500 MG, BID
     Dates: start: 20241203
  9. AMLODIPINE BESYLATE [Concomitant]
     Active Substance: AMLODIPINE BESYLATE
     Indication: Hypertension
     Dosage: 5 MG, QD
     Dates: start: 20241216
  10. PREDNISOLONE [Concomitant]
     Active Substance: PREDNISOLONE
     Indication: Thyroiditis
     Dosage: 68 MG, QD
     Dates: start: 20250528

REACTIONS (17)
  - Immune-mediated cholestasis [Not Recovered/Not Resolved]
  - Immune-mediated thyroiditis [Recovered/Resolved]
  - Immune-mediated encephalopathy [Recovered/Resolved]
  - Clostridium colitis [Recovered/Resolved]
  - General physical health deterioration [Unknown]
  - Thrombosis [Recovering/Resolving]
  - Hyperthyroidism [Recovered/Resolved]
  - Hypothyroidism [Unknown]
  - Dehydration [Recovered/Resolved]
  - General physical health deterioration [Unknown]
  - Liver disorder [Unknown]
  - Decreased appetite [Unknown]
  - Hypertension [Not Recovered/Not Resolved]
  - Dehydration [Recovered/Resolved]
  - Dehydration [Recovered/Resolved]
  - Fall [Recovered/Resolved]
  - Hyponatraemia [Recovered/Resolved]

NARRATIVE: CASE EVENT DATE: 20250310
